FAERS Safety Report 5018058-8 (Version None)
Quarter: 2006Q2

REPORT INFORMATION
  Report Type: 
  Country: None (occurrence: None)
  Receive Date: 20060605
  Receipt Date: 20060426
  Transmission Date: 20061013
  Serious: Yes (Hospitalization, Other)
  Sender: FDA-Public Use
  Company Number: US-AVENTIS-200613843US

PATIENT
  Sex: Female

DRUGS (13)
  1. KETEK [Suspect]
     Indication: SINUSITIS
     Dosage: DOSE: UNKNOWN
     Route: 048
     Dates: start: 20060201, end: 20060310
  2. CLARITHROMYCIN [Concomitant]
     Dosage: DOSE: UNKNOWN
  3. MOXIFLOXACIN HCL [Concomitant]
     Dosage: DOSE: UNKNOWN
  4. SINGULAIR [Concomitant]
     Dosage: DOSE: UNKNOWN
  5. ALLEGRA [Concomitant]
     Dosage: DOSE: UNKNOWN
  6. HYDROCHLOROTHIAZIDE [Concomitant]
     Dosage: DOSE: UNKNOWN
  7. ADVAIR DISKUS 100/50 [Concomitant]
     Dosage: DOSE: UNKNOWN
  8. LISINOPRIL [Concomitant]
     Dosage: DOSE: UNKNOWN
  9. NASACORT [Concomitant]
     Dosage: DOSE: UNKNOWN
  10. FOSAMAX [Concomitant]
     Dosage: DOSE: UNKNOWN
  11. NEXIUM [Concomitant]
     Dosage: DOSE: UNKNOWN
  12. MULTIVITAMIN [Concomitant]
     Dosage: DOSE: UNKNOWN
  13. GLUCOSAMINE [Concomitant]
     Dosage: DOSE: UNKNOWN

REACTIONS (14)
  - ALANINE AMINOTRANSFERASE INCREASED [None]
  - ASPARTATE AMINOTRANSFERASE INCREASED [None]
  - ASTHENIA [None]
  - BLOOD ALKALINE PHOSPHATASE INCREASED [None]
  - BLOOD AMYLASE INCREASED [None]
  - BLOOD BILIRUBIN INCREASED [None]
  - BLOOD LACTATE DEHYDROGENASE INCREASED [None]
  - DECREASED APPETITE [None]
  - FATIGUE [None]
  - HEPATIC FAILURE [None]
  - INTERNATIONAL NORMALISED RATIO INCREASED [None]
  - JAUNDICE [None]
  - LIPASE INCREASED [None]
  - NAUSEA [None]
